FAERS Safety Report 6288366-1 (Version None)
Quarter: 2009Q3

REPORT INFORMATION
  Report Type: 
  Country: None (occurrence: None)
  Receive Date: 20090729
  Receipt Date: 20090725
  Transmission Date: 20100115
  Serious: Yes (Other)
  Sender: FDA-Public Use
  Company Number: US-PFIZER INC-2009225623

PATIENT
  Sex: Male
  Weight: 80.739 kg

DRUGS (4)
  1. FLAGYL [Suspect]
     Indication: PERITONITIS
     Dosage: 500 MG, 2X/DAY
     Route: 042
     Dates: start: 20090328, end: 20090601
  2. LISINOPRIL [Concomitant]
     Indication: HYPERTENSION
     Dosage: UNK
  3. SIMVASTATIN [Concomitant]
     Indication: BLOOD CHOLESTEROL INCREASED
     Dosage: UNK
  4. LEVAQUIN [Concomitant]

REACTIONS (5)
  - ANOSMIA [None]
  - DYSGEUSIA [None]
  - MALAISE [None]
  - SWOLLEN TONGUE [None]
  - TONGUE DISORDER [None]
